FAERS Safety Report 25535036 (Version 1)
Quarter: 2025Q3

REPORT INFORMATION
  Report Type: Spontaneous
  Country: EU (occurrence: EU)
  Receive Date: 20250709
  Receipt Date: 20250709
  Transmission Date: 20251021
  Serious: Yes (Other)
  Sender: PTC THERAPEUTICS
  Company Number: EU-PTC THERAPEUTICS INC.-DE-2025PTC000720

PATIENT
  Age: 12 Year
  Sex: Male

DRUGS (1)
  1. DEFLAZACORT [Suspect]
     Active Substance: DEFLAZACORT
     Indication: Duchenne muscular dystrophy
     Route: 065

REACTIONS (6)
  - Femur fracture [Recovered/Resolved]
  - Fat embolism syndrome [Recovered/Resolved]
  - Pneumonia [Recovered/Resolved]
  - Pyrexia [Recovered/Resolved]
  - Inflammation [Recovered/Resolved]
  - Fall [Recovered/Resolved]
